FAERS Safety Report 17620872 (Version 7)
Quarter: 2021Q3

REPORT INFORMATION
  Report Type: Report from Study
  Country: JP (occurrence: JP)
  Receive Date: 20200403
  Receipt Date: 20210713
  Transmission Date: 20211014
  Serious: Yes (Hospitalization, Other)
  Sender: FDA-Public Use
  Company Number: JP-PFIZER INC-2020136353

PATIENT
  Age: 75 Year
  Sex: Female
  Weight: 36.5 kg

DRUGS (10)
  1. AZOSEMIDE [Suspect]
     Active Substance: AZOSEMIDE
     Indication: CARDIAC AMYLOIDOSIS
     Dosage: UNK
     Route: 048
     Dates: start: 20200312
  2. MAGMITT [Concomitant]
     Active Substance: MAGNESIUM OXIDE
     Indication: CONSTIPATION
     Dosage: UNK
     Route: 048
  3. TRAMAL [Concomitant]
     Active Substance: TRAMADOL
     Indication: BACK PAIN
     Dosage: UNK
     Route: 048
  4. ADETPHOS [Concomitant]
     Active Substance: ADENOSINE TRIPHOSPHATE
     Indication: DIZZINESS
     Dosage: UNK
     Route: 048
  5. BETAHISTINE MESILATE [Concomitant]
     Active Substance: BETAHISTINE MESILATE
     Indication: BACK PAIN
     Dosage: UNK
     Route: 048
  6. CALONAL [Concomitant]
     Active Substance: ACETAMINOPHEN
     Indication: CARDIAC AMYLOIDOSIS
     Dosage: UNK
     Route: 048
  7. VYNDAQEL [Suspect]
     Active Substance: TAFAMIDIS MEGLUMINE
     Indication: CARDIAC AMYLOIDOSIS
     Dosage: 80 MG, 1X/DAY
     Route: 048
     Dates: start: 20200213, end: 20200401
  8. FUROSEMIDE. [Concomitant]
     Active Substance: FUROSEMIDE
     Dosage: UNK
     Route: 048
     Dates: end: 20200311
  9. ALDACTONE A 25MG [Suspect]
     Active Substance: SPIRONOLACTONE
     Indication: CARDIAC AMYLOIDOSIS
     Dosage: UNK
     Route: 048
     Dates: start: 20200312
  10. TAKECAB [Concomitant]
     Active Substance: VONOPRAZAN FUMARATE
     Indication: ABDOMINAL PAIN UPPER
     Dosage: UNK
     Route: 048

REACTIONS (4)
  - Fall [Recovering/Resolving]
  - Cardiac failure acute [Recovering/Resolving]
  - Orthostatic hypotension [Not Recovered/Not Resolved]
  - Femur fracture [Recovering/Resolving]

NARRATIVE: CASE EVENT DATE: 202003
